FAERS Safety Report 7563719-X (Version None)
Quarter: 2011Q2

REPORT INFORMATION
  Report Type: 
  Country: None (occurrence: None)
  Receive Date: 20110622
  Receipt Date: 20110616
  Transmission Date: 20111010
  Serious: Yes (Other)
  Sender: FDA-Public Use
  Company Number: GB-MERCK-1106GBR00080

PATIENT
  Age: 60 Year
  Sex: Male
  Weight: 97 kg

DRUGS (1)
  1. JANUVIA [Suspect]
     Indication: DIABETES MELLITUS
     Route: 048

REACTIONS (1)
  - MONONEURITIS [None]
